FAERS Safety Report 13279103 (Version 1)
Quarter: 2017Q1

REPORT INFORMATION
  Report Type: Spontaneous
  Country: PL (occurrence: PL)
  Receive Date: 20170228
  Receipt Date: 20170228
  Transmission Date: 20170428
  Serious: Yes (Hospitalization)
  Sender: FDA-Public Use
  Company Number: PHHY2017PL025038

PATIENT
  Age: 22 Year
  Sex: Female
  Weight: 46 kg

DRUGS (2)
  1. LOGEST [Concomitant]
     Indication: CONTRACEPTION
     Route: 065
     Dates: start: 201502
  2. AMOKSIKLAV [Suspect]
     Active Substance: AMOXICILLIN\CLAVULANATE POTASSIUM
     Indication: RENAL DISORDER
     Dosage: UNK, BID
     Route: 048
     Dates: start: 20170112, end: 20170117

REACTIONS (2)
  - Skin lesion [Recovering/Resolving]
  - Rash maculo-papular [Recovering/Resolving]

NARRATIVE: CASE EVENT DATE: 20170117
